FAERS Safety Report 7783881-3 (Version None)
Quarter: 2011Q3

REPORT INFORMATION
  Report Type: 
  Country: None (occurrence: None)
  Receive Date: 20110928
  Receipt Date: 20110922
  Transmission Date: 20111222
  Serious: Yes (Hospitalization)
  Sender: FDA-Public Use
  Company Number: US-GLAXOSMITHKLINE-A0945626A

PATIENT
  Sex: Female

DRUGS (4)
  1. ASPIRIN [Concomitant]
  2. VITAMIN TAB [Concomitant]
  3. UNKNOWN [Concomitant]
  4. AVANDIA [Suspect]
     Indication: PRODUCT USED FOR UNKNOWN INDICATION
     Route: 048
     Dates: end: 20020207

REACTIONS (1)
  - MYOCARDIAL INFARCTION [None]
